FAERS Safety Report 5564983-9 (Version None)
Quarter: 2007Q4

REPORT INFORMATION
  Report Type: 
  Country: None (occurrence: None)
  Receive Date: 20071218
  Receipt Date: 20071214
  Transmission Date: 20080405
  Serious: Yes (Other)
  Sender: FDA-Public Use
  Company Number: B0500260A

PATIENT
  Age: 2 Year
  Sex: Female

DRUGS (1)
  1. ZINNAT [Suspect]
     Indication: EAR INFECTION
     Dosage: 15MGK PER DAY
     Route: 048
     Dates: start: 20071106

REACTIONS (8)
  - ALANINE AMINOTRANSFERASE INCREASED [None]
  - ASPARTATE AMINOTRANSFERASE INCREASED [None]
  - DEPRESSED MOOD [None]
  - DIARRHOEA [None]
  - HEPATITIS [None]
  - TRANSAMINASES INCREASED [None]
  - VOMITING [None]
  - WEIGHT DECREASED [None]
